FAERS Safety Report 4779614-5 (Version None)
Quarter: 2005Q3

REPORT INFORMATION
  Report Type: 
  Country: None (occurrence: None)
  Receive Date: 20050914
  Receipt Date: 20050126
  Transmission Date: 20060218
  Serious: Yes (Death, Hospitalization)
  Sender: FDA-Public Use
  Company Number: 163-20785-05010485

PATIENT
  Age: 64 Year
  Sex: Female
  Weight: 68.5 kg

DRUGS (3)
  1. THALOMID [Suspect]
     Indication: MULTIPLE MYELOMA
     Dosage: 200 MG, DAILY FOR 28 DAYS FOR 4 CYCLES, ORAL
     Route: 048
     Dates: start: 20030117, end: 20030601
  2. DEXAMETHASONE [Suspect]
     Indication: MULTIPLE MYELOMA
     Dosage: 40 MG, QD D1-4, 9-12, 17-20 Q28DAYS X 4 CYCLES, ORAL
     Route: 048
     Dates: start: 20030117, end: 20030528
  3. ZOLEDRONIC ACID (ZOLEDRONIC ACID) [Suspect]
     Indication: MULTIPLE MYELOMA
     Dosage: 4 MG, OVER 15 MIN ON DAY 1 + WKS 4, 8, 12, 16, INTRAVENOUS
     Route: 042
     Dates: start: 20030117, end: 20030509

REACTIONS (8)
  - ABDOMINAL PAIN [None]
  - CONTUSION [None]
  - DEATH [None]
  - DISEASE PROGRESSION [None]
  - HAEMOGLOBIN DECREASED [None]
  - LEUKAEMIA PLASMACYTIC [None]
  - PLATELET COUNT DECREASED [None]
  - WEIGHT DECREASED [None]
